FAERS Safety Report 8949517 (Version 4)
Quarter: 2013Q1

REPORT INFORMATION
  Report Type: Report from Study
  Country: ES (occurrence: ES)
  Receive Date: 20121206
  Receipt Date: 20130118
  Transmission Date: 20140127
  Serious: Yes (Hospitalization)
  Sender: FDA-Public Use
  Company Number: ES-AMGEN-ESPCT2012078136

PATIENT
  Age: 43 Year
  Sex: Female
  Weight: 55.6 kg

DRUGS (9)
  1. PANITUMUMAB [Suspect]
     Indication: ANAL CANCER
     Dosage: 6 MG/KG, Q2WK
     Route: 042
     Dates: start: 20121022, end: 20121120
  2. 5-FU [Concomitant]
     Indication: ANAL CANCER
     Dosage: 1000 MG/M2, Q3WK
     Route: 042
     Dates: start: 20121022
  3. MITOMYCIN C [Concomitant]
     Dosage: 10 MG/M2, Q3WK
     Route: 042
     Dates: start: 20121022
  4. BLASTOESTIMULINA [Concomitant]
  5. IBUPROFEN [Concomitant]
     Dosage: UNK UNK, Q8H
  6. METAMIZOLE [Concomitant]
  7. OMEPRAZOLE [Concomitant]
  8. LINITUL [Concomitant]
  9. PRIMPERAN [Concomitant]

REACTIONS (3)
  - Proctalgia [Recovered/Resolved]
  - Genital pain [Recovered/Resolved]
  - Pancytopenia [Recovered/Resolved]
